FAERS Safety Report 7798162-1 (Version None)
Quarter: 2011Q4

REPORT INFORMATION
  Report Type: 
  Country: None (occurrence: None)
  Receive Date: 20111005
  Receipt Date: 20110926
  Transmission Date: 20120403
  Serious: Yes (Life-Threatening, Other)
  Sender: FDA-Public Use
  Company Number: US-ACTELION-A-US2011-54392

PATIENT

DRUGS (2)
  1. TRACLEER [Suspect]
     Indication: PULMONARY ARTERIAL HYPERTENSION
     Dosage: UNK
     Route: 048
     Dates: start: 20101124
  2. CALCIUM CHANNEL BLOCKERS [Concomitant]

REACTIONS (3)
  - RENAL IMPAIRMENT [None]
  - RENAL FAILURE CHRONIC [None]
  - DIALYSIS [None]
